FAERS Safety Report 8372368-5 (Version None)
Quarter: 2012Q2

REPORT INFORMATION
  Report Type: 
  Country: None (occurrence: None)
  Receive Date: 20120521
  Receipt Date: 20120514
  Transmission Date: 20120825
  Serious: No
  Sender: FDA-Public Use
  Company Number: US-PFIZER INC-2012117220

PATIENT
  Sex: Female

DRUGS (8)
  1. FLONASE [Concomitant]
  2. XANAX [Concomitant]
  3. KLONOPIN [Concomitant]
  4. PRILOSEC [Concomitant]
  5. ADVAIR DISKUS 100/50 [Concomitant]
  6. ALBUTEROL [Concomitant]
  7. DEPO-PROVERA [Concomitant]
     Dosage: UNK, MONTHLY
  8. POTASSIUM PENICILLIN G [Suspect]
     Dosage: UNK

REACTIONS (1)
  - DRUG HYPERSENSITIVITY [None]
